FAERS Safety Report 24149159 (Version 2)
Quarter: 2024Q3

REPORT INFORMATION
  Report Type: Report from Study
  Country: ES (occurrence: ES)
  Receive Date: 20240729
  Receipt Date: 20240812
  Transmission Date: 20241017
  Serious: Yes (Hospitalization, Other)
  Sender: ABBVIE
  Company Number: ES-ABBVIE-5779389

PATIENT
  Sex: Female

DRUGS (2)
  1. CARBIDOPA\LEVODOPA [Suspect]
     Active Substance: CARBIDOPA\LEVODOPA
     Indication: Parkinson^s disease
     Route: 050
     Dates: start: 20151111, end: 202407
  2. CARBIDOPA\LEVODOPA [Suspect]
     Active Substance: CARBIDOPA\LEVODOPA
     Route: 050

REACTIONS (17)
  - Embedded device [Unknown]
  - Speech disorder [Not Recovered/Not Resolved]
  - Stoma site discharge [Unknown]
  - Incorrect route of product administration [Not Recovered/Not Resolved]
  - Device dislocation [Unknown]
  - Trismus [Not Recovered/Not Resolved]
  - On and off phenomenon [Unknown]
  - Parkinson^s disease [Unknown]
  - Loose tooth [Not Recovered/Not Resolved]
  - Oesophageal perforation [Unknown]
  - Speech disorder [Recovered/Resolved]
  - Freezing phenomenon [Not Recovered/Not Resolved]
  - Stoma site discharge [Recovered/Resolved]
  - Gait disturbance [Not Recovered/Not Resolved]
  - Therapeutic product effect incomplete [Unknown]
  - Musculoskeletal stiffness [Not Recovered/Not Resolved]
  - Muscle spasms [Not Recovered/Not Resolved]

NARRATIVE: CASE EVENT DATE: 20240101
